FAERS Safety Report 24976527 (Version 1)
Quarter: 2025Q1

REPORT INFORMATION
  Report Type: Spontaneous
  Country: US (occurrence: US)
  Receive Date: 20250217
  Receipt Date: 20250217
  Transmission Date: 20250408
  Serious: No
  Sender: MYLAN
  Company Number: US-MYLANLABS-2025M1011607

PATIENT
  Sex: Male
  Weight: 131 kg

DRUGS (1)
  1. NEURONTIN [Suspect]
     Active Substance: GABAPENTIN
     Indication: Neuralgia
     Dosage: 200 MILLIGRAM, TID (TAKE 2 CAPSULES, 200 MG TOTAL BY MOUTH THREE TIMES PER DAY IF NEEDED)
     Route: 065

REACTIONS (1)
  - Off label use [Unknown]
